FAERS Safety Report 6445997-3 (Version None)
Quarter: 2009Q4

REPORT INFORMATION
  Report Type: 
  Country: None (occurrence: None)
  Receive Date: 20091119
  Receipt Date: 20090717
  Transmission Date: 20100525
  Serious: No
  Sender: FDA-Public Use
  Company Number: A0794352A

PATIENT
  Age: 75 Year
  Sex: Female
  Weight: 51.4 kg

DRUGS (19)
  1. WELLBUTRIN [Suspect]
     Indication: DEPRESSION
     Dosage: 150MG PER DAY
     Route: 048
     Dates: start: 20070621, end: 20090529
  2. ARICEPT [Suspect]
     Indication: DEMENTIA
     Dosage: 10MG PER DAY
     Route: 048
  3. NAMENDA [Suspect]
     Indication: DEMENTIA
     Dosage: 10MG TWICE PER DAY
     Route: 048
  4. METFORMIN HYDROCHLORIDE [Concomitant]
     Dosage: 500MG TWICE PER DAY
     Route: 048
  5. GLIPIZIDE [Concomitant]
     Dosage: 10MG TWICE PER DAY
     Route: 048
     Dates: start: 20061214
  6. ZOCOR [Concomitant]
     Dosage: 40MG AT NIGHT
     Route: 048
     Dates: start: 20040927
  7. ASPIRIN [Concomitant]
     Dosage: 81MG PER DAY
     Route: 048
     Dates: start: 20040507
  8. LISINOPRIL [Concomitant]
     Indication: HYPERTENSION
     Dosage: 10MG PER DAY
     Route: 048
     Dates: start: 20051114
  9. COREG [Concomitant]
     Indication: HYPERTENSION
     Dosage: 6.25MG TWICE PER DAY
     Route: 048
     Dates: start: 20051203
  10. NEURONTIN [Concomitant]
     Dosage: 100MG THREE TIMES PER DAY
     Route: 048
     Dates: start: 20020821
  11. ALENDRONATE [Concomitant]
     Indication: OSTEOPOROSIS
     Dosage: 70MG WEEKLY
     Route: 048
     Dates: start: 20021010
  12. TYLENOL (CAPLET) [Concomitant]
     Dosage: 2TAB AS REQUIRED
     Route: 048
  13. LIDODERM [Concomitant]
     Route: 062
  14. MECLIZINE [Concomitant]
     Dosage: 25MG AS REQUIRED
     Route: 048
  15. CELLUVISC EYE DROPS [Concomitant]
  16. BACITRACIN [Concomitant]
  17. WARM COMPRESS [Concomitant]
  18. GENTEAL [Concomitant]
  19. NITROGLYCERIN [Concomitant]
     Route: 060

REACTIONS (4)
  - ABDOMINAL DISTENSION [None]
  - DIARRHOEA [None]
  - FLATULENCE [None]
  - HYPERHIDROSIS [None]
